FAERS Safety Report 8501021-X (Version None)
Quarter: 2012Q3

REPORT INFORMATION
  Report Type: 
  Country: None (occurrence: None)
  Receive Date: 20120710
  Receipt Date: 20120627
  Transmission Date: 20120928
  Serious: No
  Sender: FDA-Public Use
  Company Number: US-ASTRAZENECA-2011SE60799

PATIENT
  Age: 67 Year
  Sex: Female

DRUGS (1)
  1. NEXIUM [Suspect]
     Route: 048

REACTIONS (10)
  - GASTROOESOPHAGEAL REFLUX DISEASE [None]
  - OESOPHAGEAL SPASM [None]
  - HEADACHE [None]
  - APHAGIA [None]
  - OCCIPITAL NEURALGIA [None]
  - MIGRAINE [None]
  - INTENTIONAL DRUG MISUSE [None]
  - WEIGHT DECREASED [None]
  - SLEEP DISORDER DUE TO A GENERAL MEDICAL CONDITION [None]
  - DRUG DOSE OMISSION [None]
